FAERS Safety Report 10780126 (Version 1)
Quarter: 2015Q1

REPORT INFORMATION
  Report Type: Spontaneous
  Country: JP (occurrence: JP)
  Receive Date: 20150210
  Receipt Date: 20150210
  Transmission Date: 20150721
  Serious: Yes (Hospitalization)
  Sender: FDA-Public Use
  Company Number: PHHY2015JP013444

PATIENT
  Age: 48 Year
  Sex: Female

DRUGS (2)
  1. PHENYTOIN. [Suspect]
     Active Substance: PHENYTOIN
     Indication: EPILEPSY
     Route: 065
  2. VALPROIC ACID. [Suspect]
     Active Substance: VALPROIC ACID
     Indication: EPILEPSY
     Route: 065

REACTIONS (15)
  - Red blood cell sedimentation rate increased [Unknown]
  - Selective IgA immunodeficiency [Unknown]
  - Diarrhoea [Unknown]
  - C-reactive protein increased [Unknown]
  - Weight increased [Unknown]
  - Haematuria [Unknown]
  - Proteinuria [Unknown]
  - Antineutrophil cytoplasmic antibody positive [Recovering/Resolving]
  - Bronchiolitis [Unknown]
  - Enterocolitis [Unknown]
  - Pyrexia [Unknown]
  - Productive cough [Unknown]
  - Fatigue [Unknown]
  - Renal failure [Unknown]
  - Glomerulonephritis [Unknown]
